FAERS Safety Report 4885240-X (Version None)
Quarter: 2005Q4

REPORT INFORMATION
  Report Type: 
  Country: None (occurrence: None)
  Receive Date: 20051214
  Receipt Date: 20050310
  Transmission Date: 20060501
  Serious: Yes (Hospitalization)
  Sender: FDA-Public Use
  Company Number: RS005042-USA

PATIENT
  Age: 58 Year
  Sex: Female

DRUGS (8)
  1. ACIPHEX [Suspect]
     Indication: BARRETT'S OESOPHAGUS
     Dosage: ORAL
     Route: 048
     Dates: start: 20020101
  2. NEURONTIN [Concomitant]
  3. WELLBUTRIN X2 (BUPROPION HYDROCHLORIDE) [Concomitant]
  4. LIPITOR [Concomitant]
  5. VICODIN [Concomitant]
  6. PERCOCET [Concomitant]
  7. ATIVAN [Concomitant]
  8. SINGULAIR [Concomitant]

REACTIONS (1)
  - CLUSTER HEADACHE [None]
